FAERS Safety Report 17502801 (Version 1)
Quarter: 2020Q1

REPORT INFORMATION
  Report Type: Spontaneous
  Country: US (occurrence: US)
  Receive Date: 20200305
  Receipt Date: 20200305
  Transmission Date: 20200409
  Serious: No
  Sender: FDA-Public Use
  Company Number: None

PATIENT
  Age: 56 Year
  Sex: Female
  Weight: 50.4 kg

DRUGS (2)
  1. NP THYROID [Suspect]
     Active Substance: LEVOTHYROXINE\LIOTHYRONINE
     Indication: THYROID THERAPY
     Dosage: ?          QUANTITY:1 TABLET(S);?
     Route: 048
  2. MULTI VITAMIN/MINERAL [Concomitant]
     Active Substance: MINERALS\VITAMINS

REACTIONS (3)
  - Product taste abnormal [None]
  - Malaise [None]
  - Product odour abnormal [None]

NARRATIVE: CASE EVENT DATE: 20191101
